FAERS Safety Report 8998493 (Version 1)
Quarter: 2013Q1

REPORT INFORMATION
  Report Type: Report from Study
  Country: FR (occurrence: FR)
  Receive Date: 20130103
  Receipt Date: 20130103
  Transmission Date: 20140127
  Serious: Yes (Death, Hospitalization)
  Sender: FDA-Public Use
  Company Number: FR-ROCHE-1174425

PATIENT
  Age: 75 Year
  Sex: Male
  Weight: 65 kg

DRUGS (2)
  1. HEPARIN CALCIUM [Concomitant]
     Route: 058
     Dates: start: 19930424
  2. ALTEPLASE [Suspect]
     Indication: ACUTE MYOCARDIAL INFARCTION
     Route: 042
     Dates: start: 19880826, end: 19880826

REACTIONS (2)
  - Acute respiratory failure [Fatal]
  - Angina pectoris [Not Recovered/Not Resolved]
